FAERS Safety Report 20063427 (Version 1)
Quarter: 2021Q4

REPORT INFORMATION
  Report Type: Spontaneous
  Country: US (occurrence: None)
  Receive Date: 20211111
  Receipt Date: 20211111
  Transmission Date: 20220303
  Serious: No
  Sender: FDA-Public Use
  Company Number: None

PATIENT
  Age: 52 Year
  Sex: Female

DRUGS (1)
  1. EPOPROSTENOL [Suspect]
     Active Substance: EPOPROSTENOL
     Indication: Pulmonary arterial hypertension
     Dosage: OTHER QUANTITY : 22/NG/KG/MIN;?OTHER FREQUENCY : CONTINUOUSLY;?
     Route: 042
     Dates: start: 202105

REACTIONS (3)
  - Nausea [None]
  - Feeling abnormal [None]
  - Drug titration [None]

NARRATIVE: CASE EVENT DATE: 20211105
